FAERS Safety Report 19713705 (Version 4)
Quarter: 2021Q3

REPORT INFORMATION
  Report Type: Spontaneous
  Country: JP (occurrence: JP)
  Receive Date: 20210817
  Receipt Date: 20210930
  Transmission Date: 20211014
  Serious: Yes (Other)
  Sender: FDA-Public Use
  Company Number: JP-SAKK-2021SA263938AA

PATIENT
  Age: 71 Year
  Sex: Male

DRUGS (12)
  1. MABCAMPATH [Suspect]
     Active Substance: ALEMTUZUMAB
     Indication: T-CELL PROLYMPHOCYTIC LEUKAEMIA
     Dosage: 30 MG
     Route: 041
     Dates: start: 20210812, end: 20210812
  2. MABCAMPATH [Suspect]
     Active Substance: ALEMTUZUMAB
     Dosage: 30 MG
     Route: 041
     Dates: start: 20210806, end: 20210806
  3. MABCAMPATH [Suspect]
     Active Substance: ALEMTUZUMAB
     Dosage: 30 MG, QOD
     Route: 041
     Dates: start: 20210830, end: 20210903
  4. MABCAMPATH [Suspect]
     Active Substance: ALEMTUZUMAB
     Dosage: 30 MG, QOD
     Route: 041
     Dates: start: 20210816, end: 20210820
  5. MABCAMPATH [Suspect]
     Active Substance: ALEMTUZUMAB
     Dosage: 30 MG, Q4D
     Route: 041
     Dates: start: 20210913, end: 20210917
  6. MABCAMPATH [Suspect]
     Active Substance: ALEMTUZUMAB
     Dosage: 30 MG
     Route: 041
     Dates: start: 20210804, end: 20210804
  7. MABCAMPATH [Suspect]
     Active Substance: ALEMTUZUMAB
     Dosage: 10 MG
     Route: 041
     Dates: start: 20210803, end: 20210803
  8. MABCAMPATH [Suspect]
     Active Substance: ALEMTUZUMAB
     Dosage: 30 MG
     Route: 041
     Dates: start: 20210810, end: 20210810
  9. MABCAMPATH [Suspect]
     Active Substance: ALEMTUZUMAB
     Dosage: 30 MG, QOD
     Route: 041
     Dates: start: 20210906, end: 20210910
  10. MABCAMPATH [Suspect]
     Active Substance: ALEMTUZUMAB
     Dosage: 5 MG
     Route: 041
     Dates: start: 20210802, end: 20210802
  11. MABCAMPATH [Suspect]
     Active Substance: ALEMTUZUMAB
     Dosage: 30 MG, QOD
     Route: 041
     Dates: start: 20210823, end: 20210827
  12. FILGRASTIM [Concomitant]
     Active Substance: FILGRASTIM
     Indication: FULL BLOOD COUNT DECREASED
     Dosage: UNK
     Route: 065
     Dates: start: 20210915

REACTIONS (5)
  - Cystitis haemorrhagic [Unknown]
  - Rash [Recovered/Resolved]
  - Platelet count decreased [Unknown]
  - Haematuria [Unknown]
  - Cytomegalovirus infection [Not Recovered/Not Resolved]

NARRATIVE: CASE EVENT DATE: 20210806
